FAERS Safety Report 6384976-1 (Version None)
Quarter: 2009Q4

REPORT INFORMATION
  Report Type: 
  Country: None (occurrence: None)
  Receive Date: 20091002
  Receipt Date: 20090924
  Transmission Date: 20100525
  Serious: Yes (Other)
  Sender: FDA-Public Use
  Company Number: GB-ROCHE-439069

PATIENT
  Sex: Male
  Weight: 69 kg

DRUGS (4)
  1. CAPECITABINE [Suspect]
     Dosage: 2 WEEKS TREATMENT, FOLLOWED BY 1 WEEK REST AS PER PROTOCOL DOSE = 1650MG BID
     Route: 048
     Dates: start: 20060117, end: 20060303
  2. BEVACIZUMAB [Suspect]
     Dosage: DAY 1 AS PER PROTOCOL DOSE = 500MG
     Route: 042
     Dates: start: 20060117
  3. OXALIPLATIN [Suspect]
     Dosage: DAY 1 AS PER PROTOCOL DOSE = 220MG
     Route: 042
     Dates: start: 20060117
  4. OMEPRAZOLE [Concomitant]
     Dates: start: 20051201

REACTIONS (2)
  - BLOOD LACTATE DEHYDROGENASE INCREASED [None]
  - NON-CARDIAC CHEST PAIN [None]
